FAERS Safety Report 4971819-3 (Version None)
Quarter: 2006Q2

REPORT INFORMATION
  Report Type: 
  Country: None (occurrence: None)
  Receive Date: 20060407
  Receipt Date: 20060329
  Transmission Date: 20061013
  Serious: Yes (Other)
  Sender: FDA-Public Use
  Company Number: 2006045024

PATIENT
  Age: 56 Year
  Sex: Male

DRUGS (3)
  1. LYRICA [Suspect]
     Indication: CONVULSION
     Dosage: 50 MG (50 MG, 1 IN 1 D) ORAL
     Route: 048
     Dates: start: 20060119
  2. LAMICTAL [Concomitant]
  3. AVAPRO [Concomitant]

REACTIONS (8)
  - DYSPNOEA [None]
  - EXTRASYSTOLES [None]
  - FATIGUE [None]
  - FLUID RETENTION [None]
  - HEART RATE DECREASED [None]
  - PALPITATIONS [None]
  - SOMNOLENCE [None]
  - WEIGHT INCREASED [None]
